FAERS Safety Report 20599709 (Version 4)
Quarter: 2023Q1

REPORT INFORMATION
  Report Type: Spontaneous
  Country: IE (occurrence: IE)
  Receive Date: 20220316
  Receipt Date: 20230118
  Transmission Date: 20230418
  Serious: Yes (Other)
  Sender: FDA-Public Use
  Company Number: IE-SUN PHARMACEUTICAL INDUSTRIES LTD-2022RR-329851

PATIENT
  Age: 2 Year
  Sex: Male

DRUGS (1)
  1. PREGABALIN [Suspect]
     Active Substance: PREGABALIN
     Indication: Anxiety
     Dosage: 1200 MILLIGRAM, DAILY
     Route: 065

REACTIONS (2)
  - Foetal exposure during pregnancy [Unknown]
  - Developmental delay [Unknown]
